FAERS Safety Report 9751888 (Version 1)
Quarter: 2013Q4

REPORT INFORMATION
  Report Type: Report from Study
  Country: CH (occurrence: CH)
  Receive Date: 20131213
  Receipt Date: 20131213
  Transmission Date: 20140711
  Serious: Yes (Life-Threatening, Hospitalization)
  Sender: FDA-Public Use
  Company Number: CH-BRISTOL-MYERS SQUIBB COMPANY-19897172

PATIENT
  Age: 67 Year
  Sex: Male

DRUGS (3)
  1. CETUXIMAB [Suspect]
     Indication: OESOPHAGEAL CARCINOMA
     Dosage: MOST RECENT DOSE ON 30SEP2013
     Route: 042
     Dates: start: 20130723
  2. CISPLATIN FOR INJ [Suspect]
     Indication: OESOPHAGEAL CARCINOMA
     Dosage: MOST RECENT DOSE ON 30SEP2013
     Route: 042
     Dates: start: 20130723
  3. DOCETAXEL [Suspect]
     Indication: OESOPHAGEAL CARCINOMA
     Dosage: MOST RECENT DOSE ON 30SEP2013.
     Route: 042
     Dates: start: 20130723

REACTIONS (4)
  - Hypernatraemia [Recovered/Resolved]
  - Oesophageal ulcer [Not Recovered/Not Resolved]
  - Dysphagia [Not Recovered/Not Resolved]
  - Weight decreased [Not Recovered/Not Resolved]
